FAERS Safety Report 5668430-8 (Version None)
Quarter: 2008Q1

REPORT INFORMATION
  Report Type: 
  Country: None (occurrence: None)
  Receive Date: 20080315
  Receipt Date: 20080225
  Transmission Date: 20080703
  Serious: No
  Sender: FDA-Public Use
  Company Number: US-ABBOTT-08P-163-0439918-00

PATIENT
  Sex: Male
  Weight: 136.2 kg

DRUGS (11)
  1. HUMIRA [Suspect]
     Indication: PSORIATIC ARTHROPATHY
     Route: 058
     Dates: start: 20070426
  2. BUDESONIDE [Concomitant]
     Indication: HYPERSENSITIVITY
     Route: 045
  3. METOPROLOL TARTRATE [Concomitant]
     Indication: HEART RATE INCREASED
  4. INSULIN, NOVOLOG [Concomitant]
     Indication: DIABETES MELLITUS
     Route: 058
  5. ALPRAZOLAM [Concomitant]
     Indication: DRUG USE FOR UNKNOWN INDICATION
     Route: 048
  6. LOVASTATIN [Concomitant]
     Indication: HYPERCHOLESTEROLAEMIA
     Route: 048
  7. LOSARTAN POTASSIUM [Concomitant]
     Indication: HYPERTENSION
     Route: 048
  8. PAROXETINE HCL [Concomitant]
     Indication: DRUG USE FOR UNKNOWN INDICATION
     Route: 048
  9. PULMACORT [Concomitant]
     Indication: DRUG USE FOR UNKNOWN INDICATION
  10. FEXOFENADINE [Concomitant]
     Indication: DRUG USE FOR UNKNOWN INDICATION
     Route: 048
  11. UNKNOWN PSORIASIS CREAM [Concomitant]
     Indication: DRUG USE FOR UNKNOWN INDICATION
     Route: 061

REACTIONS (2)
  - INJECTION SITE PAIN [None]
  - SINUSITIS [None]
